FAERS Safety Report 4784161-0 (Version None)
Quarter: 2005Q3

REPORT INFORMATION
  Report Type: 
  Country: None (occurrence: None)
  Receive Date: 20050930
  Receipt Date: 20050817
  Transmission Date: 20060218
  Serious: No
  Sender: FDA-Public Use
  Company Number: US-GLAXOSMITHKLINE-A0570644A

PATIENT
  Age: 83 Year
  Sex: Male

DRUGS (10)
  1. FLOVENT [Suspect]
     Indication: BRONCHIECTASIS
     Dosage: 3PUFF THREE TIMES PER DAY
     Route: 055
     Dates: start: 20050513
  2. SEREVENT [Concomitant]
  3. COMBIVENT [Concomitant]
  4. FUROSEMIDE [Concomitant]
  5. LEVOXYL [Concomitant]
  6. RANITIDINE [Concomitant]
  7. LOVASTATIN [Concomitant]
  8. PRILOSEC [Concomitant]
  9. MULTI-VITAMIN [Concomitant]
  10. VITAMIN E [Concomitant]

REACTIONS (3)
  - DRUG INEFFECTIVE [None]
  - DYSPNOEA [None]
  - PHARMACEUTICAL PRODUCT COMPLAINT [None]
